FAERS Safety Report 25476540 (Version 1)
Quarter: 2025Q2

REPORT INFORMATION
  Report Type: Spontaneous
  Country: ES (occurrence: ES)
  Receive Date: 20250625
  Receipt Date: 20250625
  Transmission Date: 20250716
  Serious: Yes (Hospitalization)
  Sender: TEVA
  Company Number: None

PATIENT
  Age: 78 Year
  Sex: Male

DRUGS (6)
  1. HYDROCHLOROTHIAZIDE\LOSARTAN POTASSIUM [Interacting]
     Active Substance: HYDROCHLOROTHIAZIDE\LOSARTAN POTASSIUM
     Indication: Hypertension
     Dosage: LOSARTAN + HYDROCHLOROTHIAZIDE
     Route: 048
     Dates: start: 20180326, end: 20250211
  2. CIPROFLOXACIN HYDROCHLORIDE [Interacting]
     Active Substance: CIPROFLOXACIN HYDROCHLORIDE
     Indication: Arthritis infective
     Dosage: CIPROFLOXACINO (2049A)
     Route: 048
     Dates: start: 20250116, end: 20250219
  3. ATORVASTATIN [Concomitant]
     Active Substance: ATORVASTATIN
     Indication: Hyperlipidaemia
     Dosage: ATORVASTATINA (7400A)
     Route: 048
     Dates: start: 20250211
  4. CEFTAZIDIME [Interacting]
     Active Substance: CEFTAZIDIME
     Indication: Arthritis infective
     Dosage: CEFTAZIDIMA (189A)
     Route: 042
     Dates: start: 20250109, end: 20250115
  5. AMLODIPINE BESYLATE [Concomitant]
     Active Substance: AMLODIPINE BESYLATE
     Indication: Hypertension
     Dosage: AMLODIPINO (2503A)
     Route: 048
     Dates: start: 20241016
  6. ASPIRIN [Interacting]
     Active Substance: ASPIRIN
     Indication: Product used for unknown indication
     Route: 048
     Dates: start: 20250211, end: 202503

REACTIONS (1)
  - Renal tubular necrosis [Recovered/Resolved]

NARRATIVE: CASE EVENT DATE: 20250219
